FAERS Safety Report 25715641 (Version 1)
Quarter: 2025Q3

REPORT INFORMATION
  Report Type: Spontaneous
  Country: US (occurrence: None)
  Receive Date: 20250822
  Receipt Date: 20250822
  Transmission Date: 20251021
  Serious: Yes (Hospitalization)
  Sender: FDA-CTU
  Company Number: None

PATIENT
  Age: 65 Year
  Sex: Female
  Weight: 63.3 kg

DRUGS (4)
  1. FLUOROURACIL [Suspect]
     Active Substance: FLUOROURACIL
  2. PANITUMUMAB [Suspect]
     Active Substance: PANITUMUMAB
  3. LEUCOVORIN [Suspect]
     Active Substance: LEUCOVORIN\LEUCOVORIN CALCIUM
  4. IRINOTECAN [Suspect]
     Active Substance: IRINOTECAN

REACTIONS (12)
  - Confusional state [None]
  - Back pain [None]
  - Constipation [None]
  - Dysuria [None]
  - Micturition urgency [None]
  - Vaginal discharge [None]
  - Hydronephrosis [None]
  - Sterile pyuria [None]
  - Anaemia [None]
  - Leukocytosis [None]
  - Acute kidney injury [None]
  - Procalcitonin increased [None]

NARRATIVE: CASE EVENT DATE: 20250815
